FAERS Safety Report 4634831-X (Version None)
Quarter: 2005Q2

REPORT INFORMATION
  Report Type: 
  Country: None (occurrence: None)
  Receive Date: 20050412
  Receipt Date: 20050331
  Transmission Date: 20051028
  Serious: Yes (Other)
  Sender: FDA-Public Use
  Company Number: 200410545BFR

PATIENT
  Age: 31 Year
  Sex: Female
  Weight: 60 kg

DRUGS (1)
  1. ADALAT [Suspect]
     Indication: UTERINE CONTRACTIONS DURING PREGNANCY
     Dosage: 80 MG, TOTAL DAILY; ORAL
     Route: 048
     Dates: start: 20041018, end: 20050102

REACTIONS (2)
  - DRUG EXPOSURE DURING PREGNANCY [None]
  - NO ADVERSE EFFECT [None]
